FAERS Safety Report 7369070-5 (Version None)
Quarter: 2011Q1

REPORT INFORMATION
  Report Type: 
  Country: None (occurrence: None)
  Receive Date: 20110323
  Receipt Date: 20110314
  Transmission Date: 20110831
  Serious: Yes (Hospitalization, Other)
  Sender: FDA-Public Use
  Company Number: TH-PFIZER INC-2011023449

PATIENT
  Age: 15 Year
  Sex: Male
  Weight: 52 kg

DRUGS (11)
  1. IDARUBICIN [Concomitant]
     Indication: CHEMOTHERAPY
  2. NORMAL SALINE [Concomitant]
     Dosage: 10 ML, 4X/DAY
     Route: 045
     Dates: start: 20101224
  3. VORICONAZOLE [Suspect]
     Dosage: 300 MG, 2X/DAY
     Route: 048
     Dates: start: 20110106, end: 20110131
  4. CALCIUM CARBONATE [Concomitant]
     Indication: SUPPLEMENTATION THERAPY
     Dosage: 1000 MG, 2X/DAY
     Route: 048
     Dates: start: 20101230
  5. METHOTREXATE [Concomitant]
     Indication: CHEMOTHERAPY
  6. VINCRISTINE [Concomitant]
     Indication: CHEMOTHERAPY
  7. VORICONAZOLE [Suspect]
     Dosage: 220 MG, 2X/DAY
     Route: 042
     Dates: start: 20101224, end: 20110105
  8. ELSPAR [Concomitant]
     Indication: CHEMOTHERAPY
  9. VORICONAZOLE [Suspect]
     Indication: ASPERGILLOSIS
     Dosage: 330 MG, 2X/DAY
     Route: 042
     Dates: start: 20101223, end: 20101224
  10. MULTI-VITAMINS [Concomitant]
     Indication: SUPPLEMENTATION THERAPY
     Dosage: UNK
     Route: 048
     Dates: start: 20101230
  11. DEXAMETHASONE [Suspect]

REACTIONS (2)
  - MUSCULAR WEAKNESS [None]
  - HY'S LAW CASE [None]
